FAERS Safety Report 11371490 (Version 1)
Quarter: 2015Q3

REPORT INFORMATION
  Report Type: Spontaneous
  Country: CH (occurrence: CH)
  Receive Date: 20150812
  Receipt Date: 20150812
  Transmission Date: 20151125
  Serious: Yes (Hospitalization)
  Sender: FDA-Public Use
  Company Number: CH-LPDUSPRD-20150600

PATIENT
  Age: 59 Year
  Sex: Female
  Weight: 74.2 kg

DRUGS (6)
  1. DORMICUM ROCHE [Concomitant]
     Dosage: 15 MG 2 IN 1 D
     Route: 065
     Dates: start: 201112
  2. PANTOZOL [Concomitant]
     Active Substance: PANTOPRAZOLE SODIUM
     Dosage: 40 MG 1 IN 1 D
     Route: 048
     Dates: start: 20111219
  3. SYMFONA N [Concomitant]
     Active Substance: ORLISTAT
     Dosage: 60 MG 2 IN 1 D
     Route: 065
  4. FERINJECT [Suspect]
     Active Substance: FERRIC CARBOXYMALTOSE
     Dosage: 500 MG 1 IN 1 TOTAL
     Route: 042
     Dates: start: 20150707
  5. OXYCONTIN [Concomitant]
     Active Substance: OXYCODONE HYDROCHLORIDE
     Dosage: 10 MG 2 IN 1 D
     Route: 048
     Dates: start: 20110726
  6. MAGNESIUM DIASPORAL [Concomitant]
     Dosage: 300 MG 2 IN 1 D
     Route: 065
     Dates: start: 20130730

REACTIONS (6)
  - Back pain [Recovered/Resolved]
  - Blood pressure increased [Unknown]
  - General physical health deterioration [Recovered/Resolved]
  - Depressed level of consciousness [Unknown]
  - Pyrexia [Recovered/Resolved]
  - Chills [Unknown]

NARRATIVE: CASE EVENT DATE: 20150708
